FAERS Safety Report 9890098 (Version 2)
Quarter: 2014Q2

REPORT INFORMATION
  Report Type: Spontaneous
  Country: US (occurrence: US)
  Receive Date: 20140212
  Receipt Date: 20140414
  Transmission Date: 20141212
  Serious: No
  Sender: FDA-Public Use
  Company Number: US-BIOGENIDEC-2014BI011218

PATIENT
  Age: 48 Year
  Sex: Female

DRUGS (5)
  1. TECFIDERA [Suspect]
     Indication: MULTIPLE SCLEROSIS
     Dates: start: 2013
  2. TECFIDERA [Suspect]
     Indication: MULTIPLE SCLEROSIS
     Route: 048
     Dates: start: 20140109
  3. TECFIDERA [Suspect]
     Indication: MULTIPLE SCLEROSIS
     Dates: start: 20140109
  4. TECFIDERA [Suspect]
     Indication: MULTIPLE SCLEROSIS
     Route: 048
  5. ASPIRIN [Concomitant]

REACTIONS (7)
  - Prescribed underdose [Unknown]
  - Dizziness [Not Recovered/Not Resolved]
  - Vertigo [Not Recovered/Not Resolved]
  - Adverse event [Not Recovered/Not Resolved]
  - Flushing [Unknown]
  - Abdominal pain upper [Unknown]
  - Abdominal discomfort [Unknown]
